FAERS Safety Report 16791387 (Version 1)
Quarter: 2019Q3

REPORT INFORMATION
  Report Type: Spontaneous
  Country: US (occurrence: US)
  Receive Date: 20190910
  Receipt Date: 20190910
  Transmission Date: 20191005
  Serious: No
  Sender: FDA-Public Use
  Company Number: US-BAYER-2019-164768

PATIENT
  Age: 84 Year
  Sex: Male
  Weight: 73 kg

DRUGS (2)
  1. FINASTERIDE. [Concomitant]
     Active Substance: FINASTERIDE
     Dosage: UNK
  2. ALEVE [Suspect]
     Active Substance: NAPROXEN SODIUM
     Indication: MUSCULOSKELETAL PAIN
     Dosage: UNK
     Route: 048

REACTIONS (2)
  - Diarrhoea [Recovered/Resolved]
  - Alopecia [Unknown]
